FAERS Safety Report 11059837 (Version 1)
Quarter: 2015Q2

REPORT INFORMATION
  Report Type: Spontaneous
  Country: JP (occurrence: JP)
  Receive Date: 20150423
  Receipt Date: 20150423
  Transmission Date: 20150821
  Serious: Yes (Hospitalization, Other)
  Sender: FDA-Public Use
  Company Number: JP-CIPLA LTD.-2015JP03338

PATIENT

DRUGS (4)
  1. FLUOROURACIL. [Suspect]
     Active Substance: FLUOROURACIL
     Indication: BREAST CANCER FEMALE
     Dosage: UNK
     Dates: start: 200702, end: 200704
  2. CYCLOPHOSPHAMIDE. [Suspect]
     Active Substance: CYCLOPHOSPHAMIDE
     Indication: BREAST CANCER FEMALE
     Dosage: UNK
     Dates: start: 200702, end: 200704
  3. DOCETAXEL. [Suspect]
     Active Substance: DOCETAXEL
     Indication: BREAST CANCER FEMALE
     Dosage: 300 MG/M2, UNK
     Route: 065
     Dates: start: 200702, end: 200704
  4. EPIRUBICIN [Suspect]
     Active Substance: EPIRUBICIN
     Indication: BREAST CANCER FEMALE
     Dosage: UNK
     Route: 065
     Dates: start: 200702, end: 200704

REACTIONS (4)
  - Cardiotoxicity [Unknown]
  - Endocardial fibrosis [Recovered/Resolved]
  - Acute pulmonary oedema [Recovered/Resolved]
  - Cardiac failure acute [Recovered/Resolved]
